FAERS Safety Report 4923265-6 (Version None)
Quarter: 2006Q1

REPORT INFORMATION
  Report Type: 
  Country: None (occurrence: None)
  Receive Date: 20060227
  Receipt Date: 20060222
  Transmission Date: 20060701
  Serious: Yes (Hospitalization)
  Sender: FDA-Public Use
  Company Number: US-SP-2006-00432

PATIENT
  Age: 65 Year
  Sex: Male

DRUGS (4)
  1. THERACYS [Suspect]
     Indication: BLADDER CANCER
     Route: 043
     Dates: start: 20051122
  2. CELEBREX [Concomitant]
  3. LEVAQUIN [Concomitant]
  4. IBUPROFEN [Concomitant]

REACTIONS (3)
  - EPIDIDYMITIS [None]
  - PYREXIA [None]
  - SCROTAL PAIN [None]
